FAERS Safety Report 7890197-3 (Version None)
Quarter: 2011Q4

REPORT INFORMATION
  Report Type: 
  Country: None (occurrence: None)
  Receive Date: 20111103
  Receipt Date: 20110721
  Transmission Date: 20120403
  Serious: Yes (Other)
  Sender: FDA-Public Use
  Company Number: US-AMGEN-USASP2011007014

PATIENT
  Age: 54 Year
  Sex: Female

DRUGS (2)
  1. PLAQUENIL [Concomitant]
  2. ENBREL [Suspect]
     Indication: RHEUMATOID ARTHRITIS
     Dosage: 50 MG, QWK
     Route: 058
     Dates: start: 20080730

REACTIONS (11)
  - BACK INJURY [None]
  - RHEUMATOID ARTHRITIS [None]
  - BACK PAIN [None]
  - MUSCULOSKELETAL PAIN [None]
  - CONVULSION [None]
  - MUSCLE TIGHTNESS [None]
  - CHEST PAIN [None]
  - OEDEMA PERIPHERAL [None]
  - TONGUE INJURY [None]
  - PAIN [None]
  - HYPERSENSITIVITY [None]
